FAERS Safety Report 9124937 (Version 2)
Quarter: 2013Q1

REPORT INFORMATION
  Report Type: Spontaneous
  Country: US (occurrence: US)
  Receive Date: 20130227
  Receipt Date: 20130307
  Transmission Date: 20140127
  Serious: Yes (Death)
  Sender: FDA-Public Use
  Company Number: CHPA2013US003554

PATIENT
  Age: 71 Year
  Sex: Male

DRUGS (1)
  1. MYOFLEX ANALGESIC CREME [Suspect]
     Indication: BACK PAIN
     Dosage: UNK, BID
     Route: 061

REACTIONS (1)
  - Death [Fatal]
